FAERS Safety Report 7751450-7 (Version None)
Quarter: 2011Q3

REPORT INFORMATION
  Report Type: 
  Country: None (occurrence: None)
  Receive Date: 20110914
  Receipt Date: 20110906
  Transmission Date: 20111222
  Serious: Yes (Other)
  Sender: FDA-Public Use
  Company Number: PHHY2011JP74680

PATIENT
  Age: 58 Year
  Sex: Male

DRUGS (1)
  1. ZOLEDRONIC ACID [Suspect]
     Indication: METASTASES TO BONE
     Route: 065

REACTIONS (5)
  - EXPOSED BONE IN JAW [None]
  - HYPOAESTHESIA ORAL [None]
  - JAW FRACTURE [None]
  - ORAL INFECTION [None]
  - OSTEONECROSIS OF JAW [None]
